FAERS Safety Report 9510551 (Version 7)
Quarter: 2014Q1

REPORT INFORMATION
  Report Type: Report from Study
  Country: CA (occurrence: AU)
  Receive Date: 20130909
  Receipt Date: 20140225
  Transmission Date: 20141002
  Serious: Yes (Hospitalization, Other)
  Sender: FDA-Public Use
  Company Number: PHHY2013AU098848

PATIENT
  Age: 36 Year
  Sex: Female

DRUGS (19)
  1. CLOZARIL [Suspect]
     Indication: SCHIZOPHRENIA
     Dosage: 600 MG, DAILY
     Route: 048
     Dates: start: 20030915, end: 20130825
  2. CLOZARIL [Suspect]
     Dosage: 400 MG, DAILY
     Route: 048
     Dates: start: 20130904
  3. CLOZARIL [Suspect]
     Dosage: 700 MG, NOCTE, DAILY
     Route: 048
     Dates: end: 201309
  4. CLOZARIL [Suspect]
     Dosage: 400 MG, NOCTE, DAILY
     Route: 048
     Dates: start: 201309, end: 201310
  5. CLOZARIL [Suspect]
     Dosage: 150 MG, DAILY
     Route: 048
     Dates: start: 20131015, end: 201311
  6. CLOZARIL [Suspect]
     Dosage: UNK
     Dates: end: 20131119
  7. CLOZARIL [Suspect]
     Dosage: 250 MG, DAILY
     Route: 048
  8. CLOZARIL [Suspect]
     Dosage: 350 MG, DAILY
     Route: 048
  9. CLOZARIL [Suspect]
     Dosage: 500 MG, DAILY
     Route: 048
  10. CLOZARIL [Suspect]
     Dosage: 600 MG, QHS
     Route: 048
     Dates: start: 201310, end: 20131127
  11. VALPROIC ACID [Suspect]
     Indication: AFFECTIVE DISORDER
     Dosage: 1000 MG, QHS (NOCTE)
     Route: 048
     Dates: end: 20130918
  12. VALPROIC ACID [Suspect]
     Dosage: 1500 MG, DAILY
     Route: 048
     Dates: start: 20130918
  13. VALPROIC ACID [Suspect]
     Dosage: 1000 MG, BID
     Route: 048
     Dates: start: 201311
  14. PERINDOPRIL [Concomitant]
     Indication: HYPERTENSION
     Dosage: 4 MG, MANE
     Route: 048
  15. MEDROXYPROGESTERONE [Concomitant]
     Indication: INJECTABLE CONTRACEPTION
     Dosage: 150 MG, (EVERY 3 MONTHS)
     Route: 030
  16. DIAZEPAM [Concomitant]
     Indication: INSOMNIA
     Dosage: 10 MG, UNK
     Route: 048
     Dates: start: 201110
  17. DIAZEPAM [Concomitant]
     Indication: ANXIETY
     Dosage: 5 MG, UNK
     Dates: start: 201311, end: 20131120
  18. ARIPIPRAZOLE [Concomitant]
     Dosage: 200 MG, QD
     Route: 048
     Dates: start: 201202, end: 201309
  19. MIRENA [Concomitant]
     Indication: CONTRACEPTION
     Dosage: 150 UG, FOR 3 MONTHS

REACTIONS (10)
  - Urinary tract infection [Unknown]
  - Agranulocytosis [Unknown]
  - Leukopenia [Recovered/Resolved]
  - Neutropenia [Recovered/Resolved]
  - Schizophrenia [Recovering/Resolving]
  - Impaired self-care [Recovering/Resolving]
  - Psychotic disorder [Not Recovered/Not Resolved]
  - Anticonvulsant drug level decreased [Recovered/Resolved]
  - Antipsychotic drug level decreased [Recovered/Resolved]
  - Drug resistance [Unknown]
